FAERS Safety Report 11497576 (Version 2)
Quarter: 2015Q4

REPORT INFORMATION
  Report Type: Spontaneous
  Country: CA (occurrence: CA)
  Receive Date: 20150911
  Receipt Date: 20151125
  Transmission Date: 20160304
  Serious: Yes (Other)
  Sender: FDA-Public Use
  Company Number: CA-CONCORDIA PHARMACEUTICALS INC.-CO-PL-CA-2015-223

PATIENT
  Age: 57 Year
  Sex: Female

DRUGS (8)
  1. PLAQUENIL [Suspect]
     Active Substance: HYDROXYCHLOROQUINE SULFATE
     Indication: RHEUMATOID ARTHRITIS
     Route: 065
     Dates: start: 20140806
  2. ARAVA [Suspect]
     Active Substance: LEFLUNOMIDE
     Indication: RHEUMATOID ARTHRITIS
     Route: 065
  3. METHOTREXATE SODIUM. [Suspect]
     Active Substance: METHOTREXATE SODIUM
     Indication: RHEUMATOID ARTHRITIS
     Route: 065
  4. NAPROSYN [Concomitant]
     Active Substance: NAPROXEN
     Dates: start: 201410
  5. CLONAZEPAM. [Concomitant]
     Active Substance: CLONAZEPAM
  6. SULFASALAZINE. [Suspect]
     Active Substance: SULFASALAZINE
     Indication: RHEUMATOID ARTHRITIS
     Route: 048
     Dates: start: 20140806, end: 20150602
  7. RAMIPRIL. [Concomitant]
     Active Substance: RAMIPRIL
  8. METFORMIN [Concomitant]
     Active Substance: METFORMIN HYDROCHLORIDE

REACTIONS (8)
  - Nausea [Recovered/Resolved with Sequelae]
  - Joint swelling [Unknown]
  - Abdominal discomfort [Recovered/Resolved with Sequelae]
  - Treatment failure [Recovered/Resolved]
  - Mycobacterium tuberculosis complex test positive [Recovered/Resolved with Sequelae]
  - Knee arthroplasty [Unknown]
  - Pain [Unknown]
  - Vomiting [Recovered/Resolved with Sequelae]
